FAERS Safety Report 10551132 (Version 3)
Quarter: 2015Q2

REPORT INFORMATION
  Report Type: Spontaneous
  Country: US (occurrence: US)
  Receive Date: 20141029
  Receipt Date: 20150626
  Transmission Date: 20150821
  Serious: Yes (Other)
  Sender: FDA-Public Use
  Company Number: US-UCBSA-2014010994

PATIENT
  Age: 62 Year
  Sex: Female
  Weight: 53.7 kg

DRUGS (1)
  1. KEPPRA [Suspect]
     Active Substance: LEVETIRACETAM
     Indication: EPILEPSY
     Dosage: 500 MG, 2X/DAY (BID)
     Route: 048
     Dates: start: 2001

REACTIONS (6)
  - Ear pain [Recovered/Resolved]
  - Tonsillitis [Unknown]
  - Ear disorder [Recovered/Resolved]
  - Dysphagia [Recovered/Resolved]
  - Feeling hot [Unknown]
  - Product quality issue [Unknown]

NARRATIVE: CASE EVENT DATE: 2014
